FAERS Safety Report 7257315-1 (Version None)
Quarter: 2011Q1

REPORT INFORMATION
  Report Type: 
  Country: None (occurrence: None)
  Receive Date: 20110129
  Receipt Date: 20100714
  Transmission Date: 20110831
  Serious: No
  Sender: FDA-Public Use
  Company Number: US-ABBOTT-10P-163-0658819-00

PATIENT

DRUGS (7)
  1. PREDNISONE [Concomitant]
  2. HUMIRA [Suspect]
     Indication: BEHCET'S SYNDROME
     Route: 058
     Dates: start: 20100707
  3. IMURAN [Concomitant]
     Dosage: 250MG DAILY
  4. ZETIA [Concomitant]
  5. PLAVIX [Concomitant]
  6. ADVAIR [Concomitant]
  7. NORVASC [Concomitant]

REACTIONS (3)
  - INJECTION SITE PAIN [None]
  - INCORRECT DOSE ADMINISTERED [None]
  - WRONG TECHNIQUE IN DRUG USAGE PROCESS [None]
